FAERS Safety Report 8125508-7 (Version None)
Quarter: 2012Q1

REPORT INFORMATION
  Report Type: 
  Country: None (occurrence: None)
  Receive Date: 20120209
  Receipt Date: 20120202
  Transmission Date: 20120608
  Serious: Yes (Other)
  Sender: FDA-Public Use
  Company Number: GXKR2010US08784

PATIENT
  Age: 28 Year
  Sex: Female
  Weight: 90 kg

DRUGS (7)
  1. CITALOPRAM HYDROBROMIDE [Suspect]
     Indication: DEPRESSION
     Route: 065
  2. DEXAMETHASONE [Concomitant]
  3. SCOPOLAMINE [Interacting]
     Indication: PROPHYLAXIS OF NAUSEA AND VOMITING
     Route: 062
  4. PROPOFOL [Concomitant]
     Indication: ANAESTHESIA
     Route: 042
  5. MIDAZOLAM [Concomitant]
     Indication: NERVE BLOCK
  6. ONDANSETRON [Concomitant]
  7. CITALOPRAM HYDROBROMIDE [Interacting]
     Indication: OBSESSIVE-COMPULSIVE DISORDER

REACTIONS (5)
  - DRUG INTERACTION [None]
  - MYDRIASIS [None]
  - UNRESPONSIVE TO STIMULI [None]
  - SINUS TACHYCARDIA [None]
  - ANTICHOLINERGIC SYNDROME [None]
